FAERS Safety Report 9872793 (Version 2)
Quarter: 2014Q1

REPORT INFORMATION
  Report Type: Other
  Country: US (occurrence: US)
  Receive Date: 20140206
  Receipt Date: 20140206
  Transmission Date: 20141002
  Serious: No
  Sender: FDA-Public Use
  Company Number: US-ACORDA-ACO_100683_2013

PATIENT
  Age: 60 Year
  Sex: Male

DRUGS (2)
  1. AMPYRA [Suspect]
     Indication: GAIT DISTURBANCE
     Dosage: 10 MG, BID
     Route: 048
     Dates: start: 201006
  2. AMPYRA [Suspect]
     Dosage: 1/2 TABLET, BID
     Route: 048
     Dates: start: 201311

REACTIONS (4)
  - Therapeutic response unexpected [Unknown]
  - Wrong technique in drug usage process [Unknown]
  - Urinary tract infection [Recovered/Resolved]
  - Drug ineffective [Unknown]
